FAERS Safety Report 6024737-6 (Version None)
Quarter: 2008Q4

REPORT INFORMATION
  Report Type: 
  Country: None (occurrence: None)
  Receive Date: 20081231
  Receipt Date: 20081222
  Transmission Date: 20090506
  Serious: Yes (Other)
  Sender: FDA-Public Use
  Company Number: US-JNJCH-2008057993

PATIENT
  Age: 62 Year
  Sex: Female
  Weight: 52.2 kg

DRUGS (3)
  1. SUDAFED S.A. [Suspect]
     Indication: ASTHMA
     Dosage: TEXT:1 TABLET EVERY 4 HOURS
     Route: 048
     Dates: start: 20081219, end: 20081221
  2. RESTORIL [Concomitant]
     Indication: SLEEP DISORDER
     Dosage: TEXT:1 TO 2 A DAY
     Route: 065
  3. PERCOCET [Concomitant]
     Indication: PAIN
     Dosage: TEXT:AS NEEDED
     Route: 065

REACTIONS (3)
  - DRUG DISPENSING ERROR [None]
  - OFF LABEL USE [None]
  - THROAT TIGHTNESS [None]
